FAERS Safety Report 24740839 (Version 2)
Quarter: 2024Q4

REPORT INFORMATION
  Report Type: Spontaneous
  Country: LU (occurrence: LU)
  Receive Date: 20241217
  Receipt Date: 20241229
  Transmission Date: 20250115
  Serious: Yes (Hospitalization)
  Sender: AMGEN
  Company Number: LU-PFIZER INC-PV202400153223

PATIENT
  Age: 75 Year
  Sex: Female
  Weight: 61 kg

DRUGS (8)
  1. ENBREL [Suspect]
     Active Substance: ETANERCEPT
     Indication: Oligoarthritis
     Dosage: 50 MG, WEEKLY
     Route: 058
     Dates: start: 20130101, end: 20241120
  2. ENBREL [Suspect]
     Active Substance: ETANERCEPT
     Dosage: 50 MG, WEEKLY
     Route: 058
     Dates: start: 20130101, end: 20241120
  3. EUTHYROX [Concomitant]
     Active Substance: LEVOTHYROXINE SODIUM
     Indication: Product used for unknown indication
     Dosage: 25 UG
     Route: 048
  4. EUTHYROX [Concomitant]
     Active Substance: LEVOTHYROXINE SODIUM
     Indication: Hypothyroidism
  5. BISOPROLOL FUMARATE [Concomitant]
     Active Substance: BISOPROLOL FUMARATE
     Indication: Hypertension
     Dosage: 2.5 MG, 1X/DAY
     Route: 048
  6. LUMIGAN [Concomitant]
     Active Substance: BIMATOPROST
     Indication: Intraocular pressure test
     Dosage: 0.3 MG, 1X/DAY OCULAR USE
     Route: 065
  7. EZETIMIBE\SIMVASTATIN [Concomitant]
     Active Substance: EZETIMIBE\SIMVASTATIN
     Indication: Hypercholesterolaemia
     Dosage: 1 DF, 1X/DAY
     Route: 048
  8. HERZASS [Concomitant]
     Indication: Thrombosis prophylaxis
     Dosage: 100 MG, 1X/DAY
     Route: 048

REACTIONS (2)
  - Oropharyngeal pain [Not Recovered/Not Resolved]
  - Tonsil cancer [Not Recovered/Not Resolved]

NARRATIVE: CASE EVENT DATE: 20240601
